FAERS Safety Report 8116800-0 (Version None)
Quarter: 2012Q1

REPORT INFORMATION
  Report Type: 
  Country: None (occurrence: None)
  Receive Date: 20120206
  Receipt Date: 20120201
  Transmission Date: 20120608
  Serious: Yes (Other)
  Sender: FDA-Public Use
  Company Number: PHEH2009US14095

PATIENT
  Sex: Male

DRUGS (7)
  1. MULTI-VITAMINS [Concomitant]
  2. EXJADE [Suspect]
     Dosage: 500 MG, DAILY
     Route: 048
     Dates: start: 20111111, end: 20120201
  3. EXJADE [Suspect]
     Indication: IRON METABOLISM DISORDER
     Dosage: 1000 MG, DAILY
     Route: 048
     Dates: start: 20090909, end: 20091013
  4. TYLENOL PM [Concomitant]
  5. CYCLOSPORINE [Concomitant]
  6. COLACE [Concomitant]
  7. DOXAZOSIN [Concomitant]

REACTIONS (11)
  - DYSPNOEA [None]
  - BLOOD PRESSURE INCREASED [None]
  - HEADACHE [None]
  - ABDOMINAL DISCOMFORT [None]
  - FATIGUE [None]
  - VISUAL IMPAIRMENT [None]
  - INFLUENZA [None]
  - VISION BLURRED [None]
  - PYREXIA [None]
  - FULL BLOOD COUNT DECREASED [None]
  - DIARRHOEA [None]
